FAERS Safety Report 6983847-7 (Version None)
Quarter: 2010Q3

REPORT INFORMATION
  Report Type: 
  Country: None (occurrence: None)
  Receive Date: 20100914
  Receipt Date: 20090304
  Transmission Date: 20110219
  Serious: No
  Sender: FDA-Public Use
  Company Number: US-WYE-H08226009

PATIENT
  Age: 67 Year
  Sex: Female
  Weight: 89.44 kg

DRUGS (2)
  1. ADVIL LIQUI-GELS [Suspect]
     Indication: ARTHRALGIA
     Route: 048
     Dates: start: 20090210, end: 20090212
  2. AVALIDE [Concomitant]

REACTIONS (3)
  - CONDITION AGGRAVATED [None]
  - HYPERTENSION [None]
  - INCORRECT DOSE ADMINISTERED [None]
